FAERS Safety Report 6750484-9 (Version None)
Quarter: 2010Q2

REPORT INFORMATION
  Report Type: 
  Country: None (occurrence: None)
  Receive Date: 20100601
  Receipt Date: 20100512
  Transmission Date: 20101027
  Serious: Yes (Other)
  Sender: FDA-Public Use
  Company Number: NO-MERCK-1005NOR00007

PATIENT
  Age: 78 Year
  Sex: Male

DRUGS (6)
  1. ZOCOR [Suspect]
     Route: 048
     Dates: end: 20091001
  2. ALBYL-E [Concomitant]
     Route: 048
  3. ANTABUSE [Suspect]
     Indication: ALCOHOL ABUSE
     Route: 048
     Dates: start: 20080101, end: 20091007
  4. PROSCAR [Concomitant]
     Indication: URINARY TRACT DISORDER
     Route: 048
  5. LEVOTHYROXINE SODIUM [Concomitant]
     Indication: HYPOTHYROIDISM
     Route: 048
  6. ZESTRIL [Concomitant]
     Indication: HYPERTENSION
     Route: 048
     Dates: end: 20100201

REACTIONS (1)
  - COGNITIVE DISORDER [None]
